FAERS Safety Report 20778862 (Version 2)
Quarter: 2022Q2

REPORT INFORMATION
  Report Type: Spontaneous
  Country: US (occurrence: US)
  Receive Date: 20220503
  Receipt Date: 20220524
  Transmission Date: 20220720
  Serious: No
  Sender: FDA-Public Use
  Company Number: US-PFIZER INC-202200629426

PATIENT
  Age: 65 Year
  Sex: Female
  Weight: 58.957 kg

DRUGS (1)
  1. PAXLOVID [Suspect]
     Active Substance: NIRMATRELVIR\RITONAVIR
     Indication: COVID-19 treatment
     Dosage: 10 MG, 2X/DAY
     Dates: start: 20220420, end: 20220423

REACTIONS (9)
  - Off label use [Unknown]
  - Intentional dose omission [Unknown]
  - Circumstance or information capable of leading to medication error [Unknown]
  - Diarrhoea [Recovered/Resolved]
  - Burning sensation [Recovered/Resolved]
  - Dysgeusia [Recovered/Resolved]
  - Discomfort [Recovered/Resolved]
  - Haemorrhoids [Recovered/Resolved]
  - Pruritus [Unknown]

NARRATIVE: CASE EVENT DATE: 20220420
